FAERS Safety Report 14962460 (Version 2)
Quarter: 2018Q2

REPORT INFORMATION
  Report Type: Report from Study
  Country: DE (occurrence: DE)
  Receive Date: 20180601
  Receipt Date: 20180613
  Transmission Date: 20180711
  Serious: Yes (Hospitalization, Other)
  Sender: FDA-Public Use
  Company Number: DE-TEVA-2018-DE-899796

PATIENT
  Age: 81 Year
  Sex: Female
  Weight: 54 kg

DRUGS (13)
  1. IRINOTECAN [Suspect]
     Active Substance: IRINOTECAN
     Indication: COLORECTAL CANCER METASTATIC
     Route: 065
     Dates: start: 20180228
  2. NOVAMINSULFON-RATIOPHARM [Concomitant]
     Active Substance: METAMIZOLE
     Indication: PAIN
     Dosage: 1500 MILLIGRAM DAILY;
     Route: 048
     Dates: start: 201801
  3. BISOPROLOL-RATIOPHARM [Concomitant]
     Indication: HYPERTENSION
     Dosage: 5 MILLIGRAM DAILY;
     Route: 048
     Dates: start: 201801
  4. TORASEMID RATIOPHARM [Concomitant]
     Indication: DIURETIC THERAPY
     Dosage: 10 MILLIGRAM DAILY;
     Route: 048
     Dates: start: 201801
  5. RAMIPRIL-RATIOPHARM [Concomitant]
     Indication: HYPERTENSION
     Dosage: 1.25 MILLIGRAM DAILY;
     Route: 048
     Dates: start: 201801
  6. ASS-RATIOPHARM [Concomitant]
     Active Substance: ASPIRIN
     Indication: THROMBOSIS PROPHYLAXIS
     Dosage: 100 MILLIGRAM DAILY;
     Route: 048
     Dates: start: 201801
  7. FLUOROURACIL. [Suspect]
     Active Substance: FLUOROURACIL
     Route: 040
     Dates: start: 20180228
  8. ALDACTONE [Concomitant]
     Active Substance: SPIRONOLACTONE
     Indication: DIURETIC THERAPY
     Dosage: 25 MILLIGRAM DAILY;
     Route: 048
     Dates: start: 201801
  9. MCP-RATIOPHARM [Concomitant]
     Active Substance: METOCLOPRAMIDE HYDROCHLORIDE
     Indication: CHRONIC GASTRITIS
     Dosage: 30 MILLIGRAM DAILY;
     Route: 048
     Dates: start: 20180301
  10. FLUOROURACIL. [Suspect]
     Active Substance: FLUOROURACIL
     Indication: COLORECTAL CANCER METASTATIC
     Route: 042
     Dates: start: 20180228
  11. FOLINIC ACID [Suspect]
     Active Substance: LEUCOVORIN
     Indication: COLORECTAL CANCER METASTATIC
     Route: 065
     Dates: start: 20180228
  12. PANITUMUMAB [Suspect]
     Active Substance: PANITUMUMAB
     Indication: COLORECTAL CANCER METASTATIC
     Route: 042
     Dates: start: 20180227
  13. PANTOPRAZOL RATIOPHARM [Concomitant]
     Active Substance: PANTOPRAZOLE SODIUM
     Indication: CHRONIC GASTRITIS
     Dosage: 40 MILLIGRAM DAILY;
     Route: 048
     Dates: start: 20180305

REACTIONS (1)
  - Ileus paralytic [Not Recovered/Not Resolved]

NARRATIVE: CASE EVENT DATE: 20180404
